FAERS Safety Report 21343181 (Version 1)
Quarter: 2022Q3

REPORT INFORMATION
  Report Type: Spontaneous
  Country: US (occurrence: US)
  Receive Date: 20220916
  Receipt Date: 20220916
  Transmission Date: 20221027
  Serious: Yes (Other)
  Sender: FDA-Public Use
  Company Number: US-PFIZER INC-202201163842

PATIENT
  Age: 80 Year
  Sex: Female

DRUGS (1)
  1. PREGABALIN [Suspect]
     Active Substance: PREGABALIN
     Dosage: TAKING IT TWICE A DAY 9 HOURS APART
     Dates: start: 20220910

REACTIONS (5)
  - Seizure [Unknown]
  - Overdose [Unknown]
  - Pain [Unknown]
  - Muscle spasms [Unknown]
  - Arthralgia [Unknown]

NARRATIVE: CASE EVENT DATE: 20220910
